FAERS Safety Report 8078582-0 (Version None)
Quarter: 2012Q1

REPORT INFORMATION
  Report Type: 
  Country: None (occurrence: None)
  Receive Date: 20120127
  Receipt Date: 20110103
  Transmission Date: 20120608
  Serious: Yes (Hospitalization)
  Sender: FDA-Public Use
  Company Number: US-ABBOTT-11P-163-0694864-00

PATIENT
  Sex: Female
  Weight: 83.99 kg

DRUGS (12)
  1. MAXZIDE [Concomitant]
     Indication: PRODUCT USED FOR UNKNOWN INDICATION
  2. AMBIEN [Concomitant]
     Indication: INSOMNIA
  3. NEXIUM [Concomitant]
     Indication: PRODUCT USED FOR UNKNOWN INDICATION
  4. PAXIL [Concomitant]
     Indication: PRODUCT USED FOR UNKNOWN INDICATION
  5. AVAPRO [Concomitant]
     Indication: PRODUCT USED FOR UNKNOWN INDICATION
  6. PLAQUENIL [Concomitant]
     Indication: RHEUMATOID ARTHRITIS
  7. SYNTHROID [Concomitant]
     Indication: PRODUCT USED FOR UNKNOWN INDICATION
  8. METHOTREXATE [Concomitant]
     Indication: RHEUMATOID ARTHRITIS
  9. HUMIRA [Suspect]
     Indication: RHEUMATOID ARTHRITIS
  10. CRESTOR [Concomitant]
     Indication: PRODUCT USED FOR UNKNOWN INDICATION
  11. GABAPENTIN [Concomitant]
     Indication: PRODUCT USED FOR UNKNOWN INDICATION
  12. PERCOCET [Concomitant]
     Indication: PRODUCT USED FOR UNKNOWN INDICATION

REACTIONS (1)
  - RHEUMATOID ARTHRITIS [None]
